FAERS Safety Report 25065809 (Version 3)
Quarter: 2025Q2

REPORT INFORMATION
  Report Type: Report from Study
  Country: FR (occurrence: FR)
  Receive Date: 20250311
  Receipt Date: 20250612
  Transmission Date: 20250716
  Serious: Yes (Hospitalization)
  Sender: PFIZER
  Company Number: FR-PFM-2025-01105

PATIENT
  Age: 22 Year
  Sex: Female
  Weight: 64 kg

DRUGS (25)
  1. BINIMETINIB [Suspect]
     Active Substance: BINIMETINIB
     Indication: Metastatic malignant melanoma
     Dosage: 90 MG DAILY
     Route: 065
     Dates: start: 20231010, end: 20240517
  2. ENCORAFENIB [Suspect]
     Active Substance: ENCORAFENIB
     Indication: Metastatic malignant melanoma
     Dosage: 450 MG DAILY
     Route: 065
     Dates: start: 20231010
  3. TRAMETINIB [Concomitant]
     Active Substance: TRAMETINIB
     Route: 065
     Dates: start: 20240517
  4. ACETAMINOPHEN [Concomitant]
     Active Substance: ACETAMINOPHEN
     Indication: Pain
     Dosage: 1 G, TID (3/DAY)
     Route: 065
     Dates: start: 20231007
  5. OXAZEPAM [Concomitant]
     Active Substance: OXAZEPAM
     Indication: Anxiety
     Dosage: 10 MG DAILY
     Route: 065
     Dates: start: 20230923
  6. TIAPRIDE [Concomitant]
     Active Substance: TIAPRIDE
     Indication: Depression
     Dosage: 200 MG, BID (2/DAY)
     Route: 065
     Dates: start: 20240311
  7. LANSOPRAZOLE [Concomitant]
     Active Substance: LANSOPRAZOLE
     Indication: Gastrooesophageal reflux disease
     Dosage: 15 MG PER DAY
     Route: 065
     Dates: start: 20240614
  8. PREDNISONE [Concomitant]
     Active Substance: PREDNISONE
     Indication: Pain
     Dosage: 10 MG PER DAY
     Route: 065
     Dates: start: 20240614
  9. VENLAFAXINE [Concomitant]
     Active Substance: VENLAFAXINE HYDROCHLORIDE
     Indication: Depression
     Dosage: 37.5 MG PER DAY
     Route: 065
     Dates: start: 20240614
  10. CHOLECALCIFEROL [Concomitant]
     Active Substance: CHOLECALCIFEROL
     Indication: Vitamin D deficiency
     Route: 065
     Dates: start: 20240620
  11. OXYCODONE HYDROCHLORIDE [Concomitant]
     Active Substance: OXYCODONE HYDROCHLORIDE
     Indication: Pain
     Dosage: 50 MG, BID (2/DAY)
     Route: 065
     Dates: start: 20240614, end: 20240721
  12. OXYCODONE HYDROCHLORIDE [Concomitant]
     Active Substance: OXYCODONE HYDROCHLORIDE
     Route: 065
     Dates: start: 20240614, end: 20240719
  13. OXYCODONE HYDROCHLORIDE [Concomitant]
     Active Substance: OXYCODONE HYDROCHLORIDE
     Route: 065
     Dates: start: 20240720, end: 20240723
  14. OXYCODONE HYDROCHLORIDE [Concomitant]
     Active Substance: OXYCODONE HYDROCHLORIDE
     Dosage: 70 MG, BID (2/DAY)
     Route: 065
     Dates: start: 20240722
  15. OXYCODONE HYDROCHLORIDE [Concomitant]
     Active Substance: OXYCODONE HYDROCHLORIDE
     Route: 065
     Dates: start: 20240724
  16. MONTMORILLONITE [Concomitant]
     Active Substance: MONTMORILLONITE
     Indication: Prophylaxis against diarrhoea
     Dosage: 3 G, TID (3/DAY)
     Route: 065
     Dates: start: 20231215
  17. TRIMEBUTINE MALEATE [Concomitant]
     Active Substance: TRIMEBUTINE MALEATE
     Indication: Prophylaxis
     Dosage: 100 MG, TID (3/DAY)
     Route: 065
     Dates: start: 20231214
  18. PHLOROGLUCINOL [Concomitant]
     Active Substance: PHLOROGLUCINOL
     Indication: Prophylaxis
     Dosage: 160 MG, TID (3/DAY)
     Route: 065
     Dates: start: 20231214
  19. NALOXEGOL [Concomitant]
     Active Substance: NALOXEGOL
  20. CLOMIPRAMINE [Concomitant]
     Active Substance: CLOMIPRAMINE
  21. LANSOPRAZOLE [Concomitant]
     Active Substance: LANSOPRAZOLE
  22. CALCIUM\CHOLECALCIFEROL [Concomitant]
     Active Substance: CALCIUM\CHOLECALCIFEROL
  23. GABAPENTIN [Concomitant]
     Active Substance: GABAPENTIN
  24. QUETIAPINE [Concomitant]
     Active Substance: QUETIAPINE
  25. MORPHINE [Concomitant]
     Active Substance: MORPHINE

REACTIONS (2)
  - Diarrhoea [Recovering/Resolving]
  - Hyperaesthesia [Unknown]

NARRATIVE: CASE EVENT DATE: 20240719
